FAERS Safety Report 6804515-8 (Version None)
Quarter: 2010Q2

REPORT INFORMATION
  Report Type: 
  Country: None (occurrence: None)
  Receive Date: 20100628
  Receipt Date: 20070402
  Transmission Date: 20101027
  Serious: Yes (Other)
  Sender: FDA-Public Use
  Company Number: US-PFIZER INC-2007027666

PATIENT
  Sex: Male

DRUGS (1)
  1. CADUET [Suspect]
     Dosage: 10/ 10MG

REACTIONS (3)
  - BLOOD PRESSURE INCREASED [None]
  - DRUG INEFFECTIVE [None]
  - HYPOAESTHESIA [None]
